FAERS Safety Report 7208927-2 (Version None)
Quarter: 2010Q4

REPORT INFORMATION
  Report Type: 
  Country: None (occurrence: None)
  Receive Date: 20101222
  Receipt Date: 20101207
  Transmission Date: 20110411
  Serious: Yes (Life-Threatening, Other)
  Sender: FDA-Public Use
  Company Number: 20100552

PATIENT
  Age: 15 Year
  Sex: Female

DRUGS (3)
  1. CLONIDINE HYDROCHLORIDE [Suspect]
     Indication: SELF INJURIOUS BEHAVIOUR
     Dosage: ORAL
     Route: 048
  2. TRAZODONE [Suspect]
     Indication: SELF INJURIOUS BEHAVIOUR
     Dosage: ORAL
     Route: 048
  3. QUETIAPINE [Suspect]
     Indication: SELF INJURIOUS BEHAVIOUR
     Dosage: ORAL
     Route: 048

REACTIONS (12)
  - DELIRIUM [None]
  - DRUG TOXICITY [None]
  - ELECTROCARDIOGRAM ABNORMAL [None]
  - ELECTROCARDIOGRAM QT PROLONGED [None]
  - HYPOTENSION [None]
  - LETHARGY [None]
  - MULTIPLE DRUG OVERDOSE [None]
  - SEDATION [None]
  - SELF-MEDICATION [None]
  - SOMNOLENCE [None]
  - TACHYCARDIA [None]
  - UNRESPONSIVE TO STIMULI [None]
